FAERS Safety Report 5799893-5 (Version None)
Quarter: 2008Q3

REPORT INFORMATION
  Report Type: 
  Country: None (occurrence: None)
  Receive Date: 20080701
  Receipt Date: 20080616
  Transmission Date: 20090109
  Serious: Yes (Hospitalization)
  Sender: FDA-Public Use
  Company Number: 2008AL007032

PATIENT

DRUGS (1)
  1. DIGOXIN [Suspect]
     Route: 048

REACTIONS (3)
  - BODY MASS INDEX DECREASED [None]
  - LABORATORY TEST ABNORMAL [None]
  - THERAPEUTIC AGENT TOXICITY [None]
